FAERS Safety Report 8045845-4 (Version None)
Quarter: 2012Q1

REPORT INFORMATION
  Report Type: 
  Country: None (occurrence: None)
  Receive Date: 20120113
  Receipt Date: 20120111
  Transmission Date: 20120608
  Serious: Yes (Other)
  Sender: FDA-Public Use
  Company Number: CHPA2012FI001026

PATIENT
  Sex: Female

DRUGS (2)
  1. NICOTINE [Suspect]
     Dosage: UNK, UNK
     Route: 062
  2. WARFARIN SODIUM [Concomitant]
     Dosage: UNK, UNK

REACTIONS (1)
  - INTERNATIONAL NORMALISED RATIO ABNORMAL [None]
